FAERS Safety Report 21889183 (Version 1)
Quarter: 2023Q1

REPORT INFORMATION
  Report Type: Report from Study
  Country: US (occurrence: US)
  Receive Date: 20230120
  Receipt Date: 20230120
  Transmission Date: 20230417
  Serious: No
  Sender: FDA-Public Use
  Company Number: US-ABBVIE-4274892

PATIENT

DRUGS (3)
  1. HUMIRA [Suspect]
     Active Substance: ADALIMUMAB
     Indication: Psoriatic arthropathy
     Route: 058
     Dates: start: 20211201
  2. HUMIRA [Suspect]
     Active Substance: ADALIMUMAB
     Indication: Back pain
  3. OTEZLA [Concomitant]
     Active Substance: APREMILAST
     Indication: Rash
     Route: 065
     Dates: start: 20130202

REACTIONS (2)
  - Therapeutic product effect incomplete [Unknown]
  - Back pain [Not Recovered/Not Resolved]
